FAERS Safety Report 6565813-9 (Version None)
Quarter: 2010Q1

REPORT INFORMATION
  Report Type: 
  Country: None (occurrence: None)
  Receive Date: 20100201
  Receipt Date: 20090501
  Transmission Date: 20100710
  Serious: No
  Sender: FDA-Public Use
  Company Number: US-ABBOTT-09P-163-0570021-00

PATIENT
  Sex: Male

DRUGS (13)
  1. LUPRON DEPOT [Suspect]
     Indication: PROSTATE CANCER
     Route: 030
     Dates: start: 20090211
  2. NORVASC [Concomitant]
     Indication: HYPERTENSION
     Route: 048
  3. ATENOLOL [Concomitant]
     Indication: HYPERTENSION
     Route: 048
  4. NOVOLIN N [Concomitant]
     Indication: DIABETES MELLITUS
     Dosage: 12-20 UNITS
     Route: 058
  5. METFORMIN HCL [Concomitant]
     Indication: DIABETES MELLITUS
     Route: 048
  6. GLIPIZIDE [Concomitant]
     Indication: DIABETES MELLITUS
     Route: 048
  7. LOVASTATIN [Concomitant]
     Indication: BLOOD CHOLESTEROL
     Route: 048
  8. COZAAR [Concomitant]
     Indication: PROTEINURIA
     Route: 048
  9. RANITIDINE [Concomitant]
     Indication: GASTROOESOPHAGEAL REFLUX DISEASE
     Route: 048
     Dates: start: 20080101
  10. MULTI-VITAMIN [Concomitant]
     Indication: VITAMIN SUPPLEMENTATION
     Route: 048
  11. BAYERS ASPIRIN [Concomitant]
     Indication: CARDIAC DISORDER
     Route: 048
  12. METAMUCIL [Concomitant]
     Indication: NUTRITIONAL SUPPORT
     Route: 048
  13. JOINT JUICE [Concomitant]
     Indication: NUTRITIONAL SUPPORT
     Route: 048

REACTIONS (5)
  - ARTHRALGIA [None]
  - FATIGUE [None]
  - HOT FLUSH [None]
  - MUSCLE SPASMS [None]
  - WEIGHT INCREASED [None]
